FAERS Safety Report 11204981 (Version 1)
Quarter: 2015Q2

REPORT INFORMATION
  Report Type: Spontaneous
  Country: GB (occurrence: None)
  Receive Date: 20150617
  Receipt Date: 20150617
  Transmission Date: 20150821
  Serious: Yes (Hospitalization)
  Sender: FDA-Public Use
  Company Number: 2015AMD00095

PATIENT
  Age: 27 Year
  Sex: Female

DRUGS (12)
  1. GABAPENTIN (GABAPENTIN) [Concomitant]
     Active Substance: GABAPENTIN
  2. BACLOFEN (BACLOFEN) [Concomitant]
     Active Substance: BACLOFEN
  3. SENNA (SENNA) [Concomitant]
  4. HYDROCORTISONE. [Suspect]
     Active Substance: HYDROCORTISONE
     Dosage: 10 MG MORNING AND LUNCHTIME, 5 MG AT TEATIME
  5. DESMOPRESSIN (DESMOPRESSIN) [Concomitant]
     Active Substance: DESMOPRESSIN
  6. CODEINE/PARACETAMOL 8/500 (CODEINE AND PARACETAMOL) [Concomitant]
  7. LEVOTHYROXINE (LEVOTHYROXINE) [Concomitant]
     Active Substance: LEVOTHYROXINE
  8. LACTULOSE (LACTULOSE) [Concomitant]
     Active Substance: LACTULOSE
  9. PREMPAK-C (CONJUGATED OESTROGENS AND NORGESTREL) [Concomitant]
  10. CLONAZEPAM (CLONAZEPAM) [Concomitant]
     Active Substance: CLONAZEPAM
  11. LAMOTRIGINE (LAMOTIRIGINE) [Concomitant]
  12. MELATONIN MODIFIED RELEASE (MELATONIN) [Concomitant]

REACTIONS (3)
  - Hyponatraemia [None]
  - Drug interaction [None]
  - Seizure [None]
